FAERS Safety Report 9819180 (Version 2)
Quarter: 2014Q1

REPORT INFORMATION
  Report Type: Spontaneous
  Country: JP (occurrence: JP)
  Receive Date: 20140115
  Receipt Date: 20140121
  Transmission Date: 20141002
  Serious: Yes (Other)
  Sender: FDA-Public Use
  Company Number: JP-PFIZER INC-2014012031

PATIENT
  Age: 43 Year
  Sex: Male

DRUGS (3)
  1. ADRIACIN [Suspect]
     Indication: OESOPHAGEAL CARCINOMA
  2. CISPLATIN [Suspect]
     Indication: OESOPHAGEAL CARCINOMA
  3. 5-FU [Suspect]
     Indication: OESOPHAGEAL CARCINOMA

REACTIONS (1)
  - Interstitial lung disease [Recovering/Resolving]
